FAERS Safety Report 15303960 (Version 1)
Quarter: 2018Q3

REPORT INFORMATION
  Report Type: Spontaneous
  Country: US (occurrence: US)
  Receive Date: 20180809
  Receipt Date: 20180809
  Transmission Date: 20181010
  Serious: Yes (Hospitalization)
  Sender: FDA-Public Use
  Company Number: None

PATIENT
  Age: 71 Year
  Sex: Male
  Weight: 72.6 kg

DRUGS (2)
  1. IPILIMUMAB [Suspect]
     Active Substance: IPILIMUMAB
     Indication: MALIGNANT MELANOMA
     Route: 040
  2. NIVOLUMAB [Suspect]
     Active Substance: NIVOLUMAB
     Indication: MALIGNANT MELANOMA

REACTIONS (8)
  - Neutropenia [None]
  - Decreased appetite [None]
  - Malaise [None]
  - Abdominal discomfort [None]
  - Jaundice [None]
  - Agranulocytosis [None]
  - Drug-induced liver injury [None]
  - Chromaturia [None]

NARRATIVE: CASE EVENT DATE: 20180705
